FAERS Safety Report 24122147 (Version 4)
Quarter: 2024Q3

REPORT INFORMATION
  Report Type: Spontaneous
  Country: HR (occurrence: HR)
  Receive Date: 20240722
  Receipt Date: 20240922
  Transmission Date: 20241017
  Serious: Yes (Hospitalization, Other)
  Sender: JOHNSON AND JOHNSON
  Company Number: HR-TEVA-VS-3220731

PATIENT
  Age: 55 Year
  Sex: Female

DRUGS (29)
  1. HALOPERIDOL [Suspect]
     Active Substance: HALOPERIDOL
     Indication: Product used for unknown indication
     Route: 065
     Dates: start: 20240602
  2. HALOPERIDOL [Suspect]
     Active Substance: HALOPERIDOL
     Route: 065
     Dates: start: 20240603
  3. HALOPERIDOL [Suspect]
     Active Substance: HALOPERIDOL
     Route: 065
     Dates: start: 20240607
  4. HALOPERIDOL [Suspect]
     Active Substance: HALOPERIDOL
     Route: 065
     Dates: start: 20240527
  5. HALOPERIDOL [Suspect]
     Active Substance: HALOPERIDOL
     Route: 065
     Dates: start: 20240609
  6. HALOPERIDOL [Suspect]
     Active Substance: HALOPERIDOL
     Route: 065
     Dates: start: 20240521
  7. HALOPERIDOL [Suspect]
     Active Substance: HALOPERIDOL
     Route: 065
     Dates: start: 20240522
  8. HALOPERIDOL [Suspect]
     Active Substance: HALOPERIDOL
     Route: 065
     Dates: start: 20240606
  9. HALOPERIDOL [Suspect]
     Active Substance: HALOPERIDOL
     Route: 065
     Dates: start: 20240525
  10. HALOPERIDOL [Suspect]
     Active Substance: HALOPERIDOL
     Route: 065
     Dates: start: 20240523
  11. PALIPERIDONE PALMITATE [Suspect]
     Active Substance: PALIPERIDONE PALMITATE
     Indication: Product used for unknown indication
     Route: 065
     Dates: start: 20240606, end: 20240610
  12. PALIPERIDONE PALMITATE [Suspect]
     Active Substance: PALIPERIDONE PALMITATE
  13. PALIPERIDONE PALMITATE [Suspect]
     Active Substance: PALIPERIDONE PALMITATE
  14. RISPERIDONE [Suspect]
     Active Substance: RISPERIDONE
     Indication: Product used for unknown indication
     Route: 065
     Dates: start: 20240606
  15. RISPERIDONE [Suspect]
     Active Substance: RISPERIDONE
     Route: 065
     Dates: start: 20240602
  16. RISPERIDONE [Suspect]
     Active Substance: RISPERIDONE
     Route: 065
     Dates: start: 20240603
  17. RISPERIDONE [Suspect]
     Active Substance: RISPERIDONE
     Route: 065
     Dates: start: 20240607
  18. QUETIAPINE FUMARATE [Suspect]
     Active Substance: QUETIAPINE FUMARATE
     Indication: Product used for unknown indication
     Route: 065
  19. NORMABEL [Suspect]
     Active Substance: DIAZEPAM
     Indication: Product used for unknown indication
     Route: 065
     Dates: start: 20240603
  20. NORMABEL [Suspect]
     Active Substance: DIAZEPAM
     Route: 065
     Dates: start: 20240521
  21. NORMABEL [Suspect]
     Active Substance: DIAZEPAM
     Route: 065
     Dates: start: 20240602
  22. NORMABEL [Suspect]
     Active Substance: DIAZEPAM
     Route: 065
     Dates: start: 20240523
  23. NORMABEL [Suspect]
     Active Substance: DIAZEPAM
     Route: 065
     Dates: start: 20240606
  24. NORMABEL [Suspect]
     Active Substance: DIAZEPAM
     Route: 065
     Dates: start: 20240609
  25. NORMABEL [Suspect]
     Active Substance: DIAZEPAM
     Route: 065
     Dates: start: 20240525
  26. NORMABEL [Suspect]
     Active Substance: DIAZEPAM
     Route: 065
     Dates: start: 20240607
  27. NORMABEL [Suspect]
     Active Substance: DIAZEPAM
     Route: 065
     Dates: start: 20240527
  28. NORMABEL [Suspect]
     Active Substance: DIAZEPAM
     Route: 065
     Dates: start: 20240522
  29. CERSON (NITRAZEPAM) [Suspect]
     Active Substance: NITRAZEPAM
     Indication: Product used for unknown indication
     Dosage: EVENING
     Route: 065
     Dates: start: 20240609

REACTIONS (2)
  - Embolism [Recovered/Resolved]
  - Asthma [Unknown]

NARRATIVE: CASE EVENT DATE: 20240101
